FAERS Safety Report 5019621-0 (Version None)
Quarter: 2006Q2

REPORT INFORMATION
  Report Type: 
  Country: None (occurrence: None)
  Receive Date: 20060601
  Receipt Date: 20060523
  Transmission Date: 20061013
  Serious: Yes (Other)
  Sender: FDA-Public Use
  Company Number: 2005024254

PATIENT
  Sex: Male

DRUGS (4)
  1. BEXTRA [Suspect]
     Indication: ILL-DEFINED DISORDER
     Dosage: 20 MG (20 MG, 1 IN 1 D)
     Dates: start: 20040108
  2. BEXTRA [Suspect]
     Indication: MUSCLE INJURY
     Dosage: 20 MG (20 MG, 1 IN 1 D)
     Dates: start: 20040108
  3. BEXTRA [Suspect]
     Indication: SHOULDER PAIN
     Dosage: 20 MG (20 MG, 1 IN 1 D)
     Dates: start: 20040108
  4. ADVIL [Concomitant]

REACTIONS (4)
  - ANGIOPATHY [None]
  - CARDIAC DISORDER [None]
  - SILENT MYOCARDIAL INFARCTION [None]
  - THROMBOSIS [None]
